FAERS Safety Report 16337593 (Version 1)
Quarter: 2019Q2

REPORT INFORMATION
  Report Type: Spontaneous
  Country: US (occurrence: US)
  Receive Date: 20190416
  Receipt Date: 20190416
  Transmission Date: 20190711
  Serious: No
  Sender: FDA-Public Use
  Company Number: None

PATIENT
  Sex: Female

DRUGS (2)
  1. SUTENT [Suspect]
     Active Substance: SUNITINIB MALATE
     Indication: MALIGNANT CONNECTIVE TISSUE NEOPLASM
     Dosage: ?          OTHER DOSE:37.5MG;?
     Route: 048
     Dates: start: 20190226
  2. SUTENT [Suspect]
     Active Substance: SUNITINIB MALATE
     Indication: SOFT TISSUE SARCOMA
     Dosage: ?          OTHER DOSE:37.5MG;?
     Route: 048
     Dates: start: 20190226

REACTIONS (3)
  - Muscular weakness [None]
  - Abdominal distension [None]
  - Hypoaesthesia [None]
